FAERS Safety Report 9513179 (Version 1)
Quarter: 2013Q3

REPORT INFORMATION
  Report Type: Spontaneous
  Country: US (occurrence: US)
  Receive Date: 20130910
  Receipt Date: 20130910
  Transmission Date: 20140515
  Serious: No
  Sender: FDA-Public Use
  Company Number: US-PFIZER INC-2013257226

PATIENT
  Age: 67 Year
  Sex: Male
  Weight: 78.47 kg

DRUGS (2)
  1. MOTRIN IB [Suspect]
     Indication: TOOTHACHE
     Dosage: 1-3 TABLETS EVERY 6-8 HOURS, AS NEEDED
     Route: 048
     Dates: start: 20130702
  2. EXTRA STRENGTH TYLENOL [Suspect]
     Indication: TOOTHACHE
     Dosage: 500 MG ABOUT 2 OR 3 TIMES A DAY
     Dates: start: 20130701

REACTIONS (1)
  - Drug ineffective [Unknown]
